FAERS Safety Report 8051939-X (Version None)
Quarter: 2012Q1

REPORT INFORMATION
  Report Type: 
  Country: None (occurrence: None)
  Receive Date: 20120118
  Receipt Date: 20120112
  Transmission Date: 20120608
  Serious: Yes (Death, Other)
  Sender: FDA-Public Use
  Company Number: JP-JNJFOC-20100502595

PATIENT
  Sex: Female
  Weight: 47 kg

DRUGS (22)
  1. DOXIL [Suspect]
     Dosage: CYCLE 5
     Route: 042
     Dates: start: 20100428, end: 20100428
  2. DOXIL [Suspect]
     Dosage: CYCLE 6
     Route: 042
     Dates: start: 20100526, end: 20100526
  3. RAMELTEON [Concomitant]
     Indication: PROPHYLAXIS
     Route: 048
  4. SODIUM BICARBONATE [Concomitant]
     Indication: PROPHYLAXIS
     Route: 002
     Dates: end: 20100608
  5. NERISONA [Concomitant]
     Route: 061
     Dates: start: 20100310, end: 20100512
  6. NICOTINAMIDE [Concomitant]
     Route: 048
     Dates: start: 20100518, end: 20100531
  7. DOXIL [Suspect]
     Indication: OVARIAN CANCER RECURRENT
     Dosage: CYCLE 2
     Route: 042
     Dates: start: 20100203, end: 20100203
  8. DOXIL [Suspect]
     Dosage: CYCLE 3
     Route: 042
     Dates: start: 20100303, end: 20100303
  9. GOREISAN [Concomitant]
     Route: 048
  10. OLOPATADINE HCL [Concomitant]
     Route: 048
     Dates: start: 20100518, end: 20100522
  11. ALLEGRA [Concomitant]
     Route: 048
     Dates: start: 20100525, end: 20100531
  12. PYDOXAL [Concomitant]
     Indication: PROPHYLAXIS
     Route: 048
     Dates: end: 20100608
  13. CINAL [Concomitant]
     Route: 048
     Dates: start: 20100310, end: 20100422
  14. DAI-KENCHU-TO [Concomitant]
     Route: 048
  15. MAGNESIUM SULFATE [Concomitant]
     Route: 048
  16. MINOCYCLINE HCL [Concomitant]
     Route: 048
     Dates: start: 20100518, end: 20100522
  17. DOXIL [Suspect]
     Dosage: CYCLE 1
     Route: 042
     Dates: start: 20100108, end: 20100108
  18. KENALOG [Concomitant]
     Route: 061
     Dates: start: 20100222
  19. DOXIL [Suspect]
     Dosage: CYCLE4
     Route: 042
     Dates: start: 20100331, end: 20100331
  20. LOXONIN [Concomitant]
     Route: 048
  21. AMOBAN [Concomitant]
     Route: 048
  22. RINDERON-VG [Concomitant]
     Route: 061
     Dates: start: 20100518, end: 20100531

REACTIONS (2)
  - RETINAL HAEMORRHAGE [None]
  - OVARIAN CANCER RECURRENT [None]
